FAERS Safety Report 24350035 (Version 3)
Quarter: 2024Q3

REPORT INFORMATION
  Report Type: Spontaneous
  Country: CN (occurrence: CN)
  Receive Date: 20240923
  Receipt Date: 20240930
  Transmission Date: 20241017
  Serious: Yes (Other)
  Sender: BAYER
  Company Number: CN-BAYER-2024A128979

PATIENT
  Age: 30 Year
  Sex: Female

DRUGS (2)
  1. AVELOX [Suspect]
     Active Substance: MOXIFLOXACIN HYDROCHLORIDE
     Indication: Cough
     Dosage: 400 MG, QD
     Route: 048
     Dates: start: 20240803, end: 20240805
  2. AVELOX [Suspect]
     Active Substance: MOXIFLOXACIN HYDROCHLORIDE
     Indication: COVID-19

REACTIONS (10)
  - Scleritis [Recovering/Resolving]
  - Vision blurred [Recovering/Resolving]
  - Mydriasis [Recovering/Resolving]
  - Pupillary reflex impaired [Recovering/Resolving]
  - Eye pain [Recovering/Resolving]
  - Photophobia [Recovering/Resolving]
  - Visual acuity reduced [Recovering/Resolving]
  - Vomiting [Recovering/Resolving]
  - Diarrhoea [Recovering/Resolving]
  - Product use in unapproved indication [None]

NARRATIVE: CASE EVENT DATE: 20240803
